FAERS Safety Report 15548555 (Version 4)
Quarter: 2019Q1

REPORT INFORMATION
  Report Type: Other
  Country: IT (occurrence: IT)
  Receive Date: 20181025
  Receipt Date: 20190225
  Transmission Date: 20190417
  Serious: Yes (Hospitalization)
  Sender: FDA-Public Use
  Company Number: IT-ACCORD-073776

PATIENT
  Age: 86 Year
  Sex: Female

DRUGS (5)
  1. RAMIPRIL. [Suspect]
     Active Substance: RAMIPRIL
     Indication: HYPERTENSION
     Route: 048
     Dates: start: 20170101, end: 20170701
  2. XARELTO [Concomitant]
     Active Substance: RIVAROXABAN
     Dosage: STRENGTH:20 MG
     Route: 048
  3. LASIX [Suspect]
     Active Substance: FUROSEMIDE
     Indication: HYPERTENSION
     Dosage: STRENGTH: 25 MG,30 TABLETS
     Route: 048
     Dates: start: 20170101, end: 20170702
  4. CONGESCOR [Suspect]
     Active Substance: BISOPROLOL
     Indication: HYPERTENSION
     Dosage: STRENGTH: 1.25 MG,28 TABLETS IN BLISTER
     Route: 048
     Dates: start: 20170101, end: 20170702
  5. PAROXETINE. [Suspect]
     Active Substance: PAROXETINE
     Indication: DEPRESSION
     Route: 048
     Dates: start: 20170101, end: 20170702

REACTIONS (4)
  - Hypertensive crisis [Unknown]
  - Vomiting [Unknown]
  - Headache [Unknown]
  - Drug ineffective [Unknown]

NARRATIVE: CASE EVENT DATE: 20170701
